FAERS Safety Report 13571358 (Version 1)
Quarter: 2017Q2

REPORT INFORMATION
  Report Type: Report from Study
  Country: US (occurrence: US)
  Receive Date: 20170523
  Receipt Date: 20170523
  Transmission Date: 20170830
  Serious: Yes (Other)
  Sender: FDA-Public Use
  Company Number: US-CIPLA LTD.-2017US08749

PATIENT

DRUGS (2)
  1. BORTEZOMIB [Suspect]
     Active Substance: BORTEZOMIB
     Indication: NEUROBLASTOMA
     Dosage: 1.2 MG/M2/DAY
     Route: 040
  2. IRINOTECAN [Suspect]
     Active Substance: IRINOTECAN
     Indication: NEUROBLASTOMA
     Dosage: 45 MG/M2/DAY
     Route: 042

REACTIONS (4)
  - Crying [Recovered/Resolved]
  - Neuralgia [Unknown]
  - Disease progression [Unknown]
  - Irritability [Recovered/Resolved]
